FAERS Safety Report 8047163-7 (Version None)
Quarter: 2012Q1

REPORT INFORMATION
  Report Type: 
  Country: None (occurrence: None)
  Receive Date: 20120116
  Receipt Date: 20120105
  Transmission Date: 20120608
  Serious: Yes (Disabling)
  Sender: FDA-Public Use
  Company Number: GB-GENZYME-POMP-1001940

PATIENT
  Age: 6 Year
  Sex: Male

DRUGS (1)
  1. MYOZYME [Suspect]
     Indication: GLYCOGEN STORAGE DISEASE TYPE II
     Dosage: UNK UNK, UNK
     Route: 042

REACTIONS (3)
  - SNEEZING [None]
  - COUGH [None]
  - RASH [None]
